FAERS Safety Report 22366550 (Version 1)
Quarter: 2023Q2

REPORT INFORMATION
  Report Type: Spontaneous
  Country: US (occurrence: None)
  Receive Date: 20230524
  Receipt Date: 20230524
  Transmission Date: 20230722
  Serious: No
  Sender: FDA-Public Use
  Company Number: None

PATIENT
  Age: 78 Year
  Sex: Female

DRUGS (1)
  1. EVEROLIMUS [Suspect]
     Active Substance: EVEROLIMUS
     Dosage: FREQUENCY : DAILY;?
     Route: 048

REACTIONS (7)
  - Urinary tract infection [None]
  - Dysuria [None]
  - Dysuria [None]
  - Chromaturia [None]
  - Urine odour abnormal [None]
  - Pyrexia [None]
  - Procedural pain [None]

NARRATIVE: CASE EVENT DATE: 20230501
